FAERS Safety Report 15644627 (Version 1)
Quarter: 2018Q4

REPORT INFORMATION
  Report Type: Spontaneous
  Country: DE (occurrence: DE)
  Receive Date: 20181121
  Receipt Date: 20181121
  Transmission Date: 20190205
  Serious: Yes (Hospitalization)
  Sender: FDA-Public Use
  Company Number: DE-ELEFSEE PHARMACEUTICALS INTERNATIONAL-DE-2018WTD001206

PATIENT
  Age: 51 Year
  Sex: Female

DRUGS (1)
  1. FENTANYL. [Suspect]
     Active Substance: FENTANYL
     Indication: PAIN
     Dosage: UNK

REACTIONS (5)
  - Rhabdomyolysis [Unknown]
  - Acute kidney injury [Unknown]
  - Coma [Recovering/Resolving]
  - Acute hepatic failure [Unknown]
  - Leukoencephalopathy [Recovering/Resolving]
